FAERS Safety Report 6030605-6 (Version None)
Quarter: 2008Q4

REPORT INFORMATION
  Report Type: 
  Country: None (occurrence: None)
  Receive Date: 20081222
  Receipt Date: 20080915
  Transmission Date: 20090506
  Serious: No
  Sender: FDA-Public Use
  Company Number: US-WYE-H06012008

PATIENT
  Age: 25 Year
  Sex: Female
  Weight: 52.21 kg

DRUGS (2)
  1. PRISTIQ [Suspect]
     Indication: ANXIETY
     Dosage: 50 MG, ONCE, ORAL
     Route: 048
     Dates: start: 20080910, end: 20080910
  2. MACROBID [Suspect]

REACTIONS (7)
  - BLOOD PRESSURE DECREASED [None]
  - DRUG INTERACTION [None]
  - HEART RATE DECREASED [None]
  - INSOMNIA [None]
  - MUSCLE SPASMS [None]
  - PARALYSIS [None]
  - TACHYPHRENIA [None]
